FAERS Safety Report 7117056-8 (Version None)
Quarter: 2010Q4

REPORT INFORMATION
  Report Type: 
  Country: None (occurrence: None)
  Receive Date: 20101122
  Receipt Date: 20101115
  Transmission Date: 20110411
  Serious: No
  Sender: FDA-Public Use
  Company Number: US-PFIZER INC-2010148529

PATIENT
  Sex: Male

DRUGS (3)
  1. VIAGRA [Suspect]
     Indication: ERECTILE DYSFUNCTION
     Dosage: 100 MG, AS NEEDED
     Route: 048
     Dates: end: 20100401
  2. METFORMIN [Concomitant]
     Dosage: 1000 MG, UNK
  3. FUROSEMIDE [Concomitant]
     Dosage: 40 MG, UNK

REACTIONS (1)
  - DRUG INEFFECTIVE [None]
